FAERS Safety Report 19174947 (Version 1)
Quarter: 2021Q2

REPORT INFORMATION
  Report Type: Spontaneous
  Country: FR (occurrence: FR)
  Receive Date: 20210423
  Receipt Date: 20210423
  Transmission Date: 20210717
  Serious: Yes (Hospitalization)
  Sender: FDA-Public Use
  Company Number: FR-BAUSCH-BL-2021-013566

PATIENT
  Age: 65 Year
  Sex: Female
  Weight: 55 kg

DRUGS (20)
  1. ORBENINE [Suspect]
     Active Substance: CLOXACILLIN SODIUM
     Indication: STAPHYLOCOCCAL INFECTION
     Route: 042
     Dates: start: 20181224, end: 20181229
  2. PAROXETINE (CHLORHYDRATE DE) ANHYDRE [Concomitant]
     Active Substance: PAROXETINE
     Indication: PRODUCT USED FOR UNKNOWN INDICATION
     Route: 048
  3. PRAVASTATINE SODIQUE [Concomitant]
     Active Substance: PRAVASTATIN SODIUM
     Indication: PRODUCT USED FOR UNKNOWN INDICATION
     Route: 048
  4. ACTISKENAN [Concomitant]
     Active Substance: MORPHINE SULFATE
     Indication: PRODUCT USED FOR UNKNOWN INDICATION
     Route: 048
     Dates: start: 20181221
  5. AMITRIPTYLINE [Concomitant]
     Active Substance: AMITRIPTYLINE
     Indication: PRODUCT USED FOR UNKNOWN INDICATION
     Route: 048
  6. GENTAMICINE [Suspect]
     Active Substance: GENTAMICIN
     Indication: STAPHYLOCOCCAL INFECTION
     Route: 042
     Dates: start: 20181221, end: 20181223
  7. PREDNISONE. [Concomitant]
     Active Substance: PREDNISONE
     Indication: PRODUCT USED FOR UNKNOWN INDICATION
     Route: 048
  8. CLARADOL CAFEINE [Concomitant]
     Active Substance: ACETAMINOPHEN\CAFFEINE
     Indication: PRODUCT USED FOR UNKNOWN INDICATION
     Dosage: 500 MG / 50 MG
     Route: 048
  9. PIPERACILLINE BASE [Suspect]
     Active Substance: PIPERACILLIN SODIUM
     Indication: KLEBSIELLA INFECTION
     Route: 042
     Dates: start: 20181229
  10. ENBREL [Concomitant]
     Active Substance: ETANERCEPT
     Indication: PRODUCT USED FOR UNKNOWN INDICATION
     Route: 048
  11. LANSOPRAZOLE. [Concomitant]
     Active Substance: LANSOPRAZOLE
     Indication: PRODUCT USED FOR UNKNOWN INDICATION
     Route: 048
  12. AUGMENTIN [Suspect]
     Active Substance: AMOXICILLIN\CLAVULANATE POTASSIUM
     Indication: STAPHYLOCOCCAL INFECTION
     Route: 042
     Dates: start: 20181221, end: 20181224
  13. RAMIPRIL. [Concomitant]
     Active Substance: RAMIPRIL
     Indication: PRODUCT USED FOR UNKNOWN INDICATION
  14. VANCOMYCINE [Suspect]
     Active Substance: VANCOMYCIN
     Indication: KLEBSIELLA INFECTION
     Route: 042
     Dates: start: 20181221, end: 20181231
  15. DOLIPRANE [Concomitant]
     Active Substance: ACETAMINOPHEN
     Indication: PRODUCT USED FOR UNKNOWN INDICATION
     Route: 048
  16. NABUCOX [Concomitant]
     Active Substance: NABUMETONE
     Indication: PRODUCT USED FOR UNKNOWN INDICATION
     Route: 048
  17. IZALGI [Concomitant]
     Active Substance: ACETAMINOPHEN\OPIUM
     Indication: PRODUCT USED FOR UNKNOWN INDICATION
     Dosage: 500 MG / 25 MG HARD CAPSULE
     Route: 048
  18. LEFLUNOMIDE. [Concomitant]
     Active Substance: LEFLUNOMIDE
     Indication: PRODUCT USED FOR UNKNOWN INDICATION
     Route: 048
  19. TAZOBACTAM [Suspect]
     Active Substance: TAZOBACTAM
     Indication: KLEBSIELLA INFECTION
     Route: 042
     Dates: start: 20181229, end: 20181231
  20. CALTRATE WITH VITAMIN D [Concomitant]
     Active Substance: CALCIUM CARBONATE\CHOLECALCIFEROL
     Indication: PRODUCT USED FOR UNKNOWN INDICATION
     Route: 048

REACTIONS (1)
  - Acute kidney injury [Recovering/Resolving]

NARRATIVE: CASE EVENT DATE: 20181230
